FAERS Safety Report 6582688-2 (Version None)
Quarter: 2010Q1

REPORT INFORMATION
  Report Type: 
  Country: None (occurrence: None)
  Receive Date: 20100212
  Receipt Date: 20100212
  Transmission Date: 20100710
  Serious: Yes (Hospitalization)
  Sender: FDA-Public Use
  Company Number: None

PATIENT
  Age: 62 Year
  Sex: Male
  Weight: 115.17 kg

DRUGS (2)
  1. FUROSEMIDE [Suspect]
     Indication: CARDIAC FAILURE CONGESTIVE
     Dosage: 40 MG EVERY DAY PO
     Route: 048
     Dates: start: 20090120
  2. METOLAZONE [Suspect]
     Indication: CARDIAC FAILURE CONGESTIVE
     Dosage: 5 MG EVERY DAY PO
     Route: 048
     Dates: start: 20080714, end: 20090914

REACTIONS (5)
  - COUGH [None]
  - FATIGUE [None]
  - NAUSEA [None]
  - VOMITING [None]
  - WHEEZING [None]
